FAERS Safety Report 8362402 (Version 4)
Quarter: 2015Q2

REPORT INFORMATION
  Report Type: Report from Study
  Country: US (occurrence: US)
  Receive Date: 20120130
  Receipt Date: 20150624
  Transmission Date: 20150821
  Serious: Yes (Death, Other)
  Sender: FDA-Public Use
  Company Number: US-ROCHE-1034426

PATIENT
  Sex: Male
  Weight: 81.27 kg

DRUGS (8)
  1. AVASTIN [Suspect]
     Active Substance: BEVACIZUMAB
     Indication: RENAL CANCER
     Route: 042
     Dates: start: 20080623
  2. NEXAVAR [Concomitant]
     Active Substance: SORAFENIB
  3. ZOMETA [Concomitant]
     Active Substance: ZOLEDRONIC ACID
  4. AVASTIN [Suspect]
     Active Substance: BEVACIZUMAB
     Indication: METASTASES TO LUNG
  5. NORVASC [Concomitant]
     Active Substance: AMLODIPINE BESYLATE
  6. TEMSIROLIMUS [Concomitant]
     Active Substance: TEMSIROLIMUS
  7. TORISEL [Concomitant]
     Active Substance: TEMSIROLIMUS
  8. SUTENT [Concomitant]
     Active Substance: SUNITINIB MALATE

REACTIONS (13)
  - Dizziness [Unknown]
  - Arthralgia [Unknown]
  - Fatigue [Unknown]
  - Headache [Unknown]
  - Abdominal pain [Unknown]
  - Asthenia [Unknown]
  - Disease progression [Unknown]
  - Hypertension [Unknown]
  - Visual impairment [Unknown]
  - Pain [Unknown]
  - Off label use [Unknown]
  - Death [Fatal]
  - Pericardial effusion [Unknown]
